FAERS Safety Report 10279277 (Version 2)
Quarter: 2014Q3

REPORT INFORMATION
  Report Type: Spontaneous
  Country: US (occurrence: US)
  Receive Date: 20140707
  Receipt Date: 20140715
  Transmission Date: 20150326
  Serious: No
  Sender: FDA-Public Use
  Company Number: US-BIOGENIDEC-2014BI065102

PATIENT
  Age: 55 Year
  Sex: Female

DRUGS (6)
  1. AVONEX [Suspect]
     Active Substance: INTERFERON BETA-1A
     Indication: MULTIPLE SCLEROSIS
     Route: 030
     Dates: start: 20140609
  2. AVONEX [Suspect]
     Active Substance: INTERFERON BETA-1A
     Indication: MULTIPLE SCLEROSIS
     Route: 030
     Dates: start: 20140613
  3. CLONAZEPAM. [Concomitant]
     Active Substance: CLONAZEPAM
  4. CALCIUM MAGNESIUM [Concomitant]
  5. BYSTOLIC [Concomitant]
     Active Substance: NEBIVOLOL HYDROCHLORIDE
  6. AVONEX [Suspect]
     Active Substance: INTERFERON BETA-1A
     Indication: MULTIPLE SCLEROSIS
     Route: 030
     Dates: start: 20040325, end: 20040915

REACTIONS (8)
  - Gait disturbance [Unknown]
  - Cognitive disorder [Unknown]
  - Irritability [Unknown]
  - Headache [Unknown]
  - Pain [Unknown]
  - Influenza like illness [Unknown]
  - Memory impairment [Unknown]
  - Gastrooesophageal reflux disease [Unknown]
